FAERS Safety Report 8482484-5 (Version None)
Quarter: 2012Q3

REPORT INFORMATION
  Report Type: 
  Country: None (occurrence: None)
  Receive Date: 20120702
  Receipt Date: 20120625
  Transmission Date: 20120928
  Serious: Yes (Other)
  Sender: FDA-Public Use
  Company Number: PHHY2012US054291

PATIENT
  Sex: Female

DRUGS (1)
  1. BUFFERIN [Suspect]

REACTIONS (2)
  - DRUG DEPENDENCE [None]
  - DRUG ADMINISTRATION ERROR [None]
